FAERS Safety Report 7383387-X (Version None)
Quarter: 2011Q1

REPORT INFORMATION
  Report Type: 
  Country: None (occurrence: None)
  Receive Date: 20110330
  Receipt Date: 20110319
  Transmission Date: 20110831
  Serious: Yes (Other)
  Sender: FDA-Public Use
  Company Number: US-BAYER-2011-024835

PATIENT
  Sex: Female

DRUGS (1)
  1. MIRENA [Suspect]
     Indication: CONTRACEPTION
     Dosage: 20 MCG/24HR, CONT
     Route: 015
     Dates: start: 20090801

REACTIONS (4)
  - MUSCLE SPASMS [None]
  - DECREASED APPETITE [None]
  - CERVICAL DYSPLASIA [None]
  - GENITAL HAEMORRHAGE [None]
